FAERS Safety Report 10045047 (Version 1)
Quarter: 2014Q1

REPORT INFORMATION
  Report Type: Spontaneous
  Country: ES (occurrence: None)
  Receive Date: 20140326
  Receipt Date: 20140326
  Transmission Date: 20141002
  Serious: Yes (Other)
  Sender: FDA-Public Use
  Company Number: AE-SPE-2014-006

PATIENT
  Sex: Male

DRUGS (1)
  1. SPECTRACEF [Suspect]

REACTIONS (3)
  - Psychotic disorder [None]
  - Suicidal ideation [None]
  - Depression [None]
